FAERS Safety Report 8496503-3 (Version None)
Quarter: 2012Q2

REPORT INFORMATION
  Report Type: 
  Country: None (occurrence: None)
  Receive Date: 20120629
  Receipt Date: 20120618
  Transmission Date: 20120825
  Serious: Yes (Death, Other)
  Sender: FDA-Public Use
  Company Number: 2012PI043794

PATIENT
  Age: 65 Year
  Sex: Female

DRUGS (2)
  1. S-1 (NO PREF. NAME) [Suspect]
     Indication: CHEMOTHERAPY
     Dosage: 40 MG/M2;BID;PO
     Route: 048
  2. IRINOTECAN HCL [Suspect]
     Indication: CHEMOTHERAPY
     Dosage: 150 MG/M2;IV
     Route: 042

REACTIONS (5)
  - PYREXIA [None]
  - PNEUMONIA [None]
  - DYSPNOEA [None]
  - NEUTROPENIA [None]
  - TOXICITY TO VARIOUS AGENTS [None]
